FAERS Safety Report 6266787-0 (Version None)
Quarter: 2009Q3

REPORT INFORMATION
  Report Type: 
  Country: None (occurrence: None)
  Receive Date: 20090714
  Receipt Date: 20090702
  Transmission Date: 20100115
  Serious: Yes (Other)
  Sender: FDA-Public Use
  Company Number: US-JNJFOC-20090701202

PATIENT
  Sex: Female

DRUGS (1)
  1. DOXIL [Suspect]
     Indication: OVARIAN CANCER RECURRENT
     Route: 042

REACTIONS (1)
  - MYALGIA [None]
